FAERS Safety Report 5201893-0 (Version None)
Quarter: 2006Q4

REPORT INFORMATION
  Report Type: 
  Country: None (occurrence: None)
  Receive Date: 20061010
  Receipt Date: 20051116
  Transmission Date: 20070319
  Serious: Yes (Death, Life-Threatening, Hospitalization)
  Sender: FDA-Public Use
  Company Number: 2005-11-0882

PATIENT
  Age: 77 Year
  Sex: Female
  Weight: 53.978 kg

DRUGS (6)
  1. TEMODAR [Suspect]
     Indication: MALIGNANT MELANOMA
     Dosage: 220 MG QD ORAL
     Route: 048
     Dates: start: 20050915, end: 20051004
  2. ZOFRAN [Concomitant]
  3. LEVOTHYROXINE SODIUM [Concomitant]
  4. GLUCOSAMINE [Concomitant]
  5. CENTRUM [Concomitant]
  6. CALCIUM [Concomitant]

REACTIONS (5)
  - DISEASE PROGRESSION [None]
  - DYSPNOEA [None]
  - FATIGUE [None]
  - PANCYTOPENIA [None]
  - URINARY TRACT INFECTION [None]
